FAERS Safety Report 6663680-6 (Version None)
Quarter: 2010Q2

REPORT INFORMATION
  Report Type: 
  Country: None (occurrence: None)
  Receive Date: 20100401
  Receipt Date: 20100324
  Transmission Date: 20101027
  Serious: Yes (Other)
  Sender: FDA-Public Use
  Company Number: JP-ASTRAZENECA-2009SE32906

PATIENT
  Sex: Female

DRUGS (3)
  1. ATACAND [Suspect]
     Indication: CARDIAC FAILURE
     Route: 048
     Dates: start: 20071218, end: 20090223
  2. SIMVASTATIN [Concomitant]
     Indication: CARDIAC FAILURE
     Route: 065
     Dates: start: 20071217
  3. METOPROLOL SUCCINATE [Concomitant]
     Indication: CARDIAC FAILURE
     Route: 065

REACTIONS (4)
  - DRUG EXPOSURE DURING PREGNANCY [None]
  - OEDEMA [None]
  - OLIGOHYDRAMNIOS [None]
  - PLACENTAL HYPERTROPHY [None]
